FAERS Safety Report 11245218 (Version 1)
Quarter: 2015Q3

REPORT INFORMATION
  Report Type: Spontaneous
  Country: ES (occurrence: ES)
  Receive Date: 20150707
  Receipt Date: 20150707
  Transmission Date: 20151125
  Serious: Yes (Other)
  Sender: FDA-Public Use
  Company Number: ES-SA-2015SA095729

PATIENT
  Age: 90 Year
  Sex: Female

DRUGS (13)
  1. SPIRONOLACTONE. [Concomitant]
     Active Substance: SPIRONOLACTONE
  2. SEGURIL [Concomitant]
     Active Substance: FUROSEMIDE
  3. OMEPRAZOLE. [Concomitant]
     Active Substance: OMEPRAZOLE
  4. TRANKIMAZIN [Concomitant]
     Active Substance: ALPRAZOLAM
  5. ARAVA [Suspect]
     Active Substance: LEFLUNOMIDE
     Route: 065
  6. HIDROFEROL [Concomitant]
     Active Substance: CALCIFEDIOL
  7. BUPRENORPHINE. [Concomitant]
     Active Substance: BUPRENORPHINE
  8. NAPRILENE [Concomitant]
     Active Substance: ENALAPRIL MALEATE
  9. ZALDIAR [Concomitant]
     Active Substance: ACETAMINOPHEN\TRAMADOL HYDROCHLORIDE
     Indication: PAIN
  10. PROLIA [Concomitant]
     Active Substance: DENOSUMAB
  11. PREDNISONE. [Concomitant]
     Active Substance: PREDNISONE
  12. DIGOXIN. [Concomitant]
     Active Substance: DIGOXIN
  13. SINTROM [Concomitant]
     Active Substance: ACENOCOUMAROL

REACTIONS (3)
  - Arrhythmia [Unknown]
  - Atrial fibrillation [Unknown]
  - Hypertension [Unknown]
